FAERS Safety Report 7125763-6 (Version None)
Quarter: 2010Q4

REPORT INFORMATION
  Report Type: 
  Country: None (occurrence: None)
  Receive Date: 20101129
  Receipt Date: 20101118
  Transmission Date: 20110411
  Serious: Yes (Hospitalization)
  Sender: FDA-Public Use
  Company Number: B0685093A

PATIENT
  Age: 69 Year
  Sex: Female

DRUGS (3)
  1. ARIXTRA [Suspect]
     Route: 058
     Dates: start: 20100807, end: 20100809
  2. AUGMENTIN [Suspect]
     Route: 048
     Dates: start: 20100809
  3. PYOSTACINE [Suspect]
     Route: 048
     Dates: start: 20100807, end: 20100809

REACTIONS (6)
  - EOSINOPHILIA [None]
  - HYPERTHERMIA [None]
  - OFF LABEL USE [None]
  - PRURIGO [None]
  - PURPURA [None]
  - TOXIC SKIN ERUPTION [None]
